FAERS Safety Report 8427191-X (Version None)
Quarter: 2012Q2

REPORT INFORMATION
  Report Type: 
  Country: None (occurrence: None)
  Receive Date: 20120611
  Receipt Date: 20120605
  Transmission Date: 20120825
  Serious: No
  Sender: FDA-Public Use
  Company Number: JP-PFIZER INC-2012131788

PATIENT
  Age: 60 Year
  Sex: Female

DRUGS (2)
  1. NORVASC [Suspect]
     Dosage: 2.5 MG DAILY
     Route: 048
     Dates: start: 20100301
  2. NORVASC [Suspect]
     Dosage: 5 MG DAILY
     Route: 048
     Dates: start: 20071101, end: 20100301

REACTIONS (1)
  - POLLAKIURIA [None]
